FAERS Safety Report 7064645-5 (Version None)
Quarter: 2010Q4

REPORT INFORMATION
  Report Type: 
  Country: None (occurrence: None)
  Receive Date: 20101027
  Receipt Date: 20101018
  Transmission Date: 20110411
  Serious: Yes (Other)
  Sender: FDA-Public Use
  Company Number: US-ASTRAZENECA-2010SE49331

PATIENT
  Age: 46 Year
  Sex: Female
  Weight: 115.6 kg

DRUGS (22)
  1. PULMICORT FLEXHALER [Suspect]
     Indication: ASTHMA
     Route: 055
  2. SAVELLA [Suspect]
     Indication: FIBROMYALGIA
     Route: 048
     Dates: start: 20100601, end: 20100601
  3. SAVELLA [Suspect]
     Route: 048
     Dates: start: 20100601, end: 20100601
  4. SAVELLA [Suspect]
     Route: 048
     Dates: start: 20100601, end: 20100601
  5. SAVELLA [Suspect]
     Route: 048
     Dates: start: 20100601, end: 20100701
  6. SAVELLA [Suspect]
     Route: 048
     Dates: start: 20100701, end: 20100801
  7. SAVELLA [Suspect]
     Route: 048
     Dates: start: 20100801, end: 20100914
  8. MAXAIR [Suspect]
     Indication: ASTHMA
     Dosage: 2 IN 1 D
  9. ADVAIR DISKUS 100/50 [Suspect]
     Indication: ASTHMA
     Dosage: 2 PUFFS BID (2 IN 1 D)
  10. ZYFLO CR [Suspect]
     Indication: ASTHMA
     Route: 048
  11. THEOPHYLLINE [Suspect]
     Indication: ASTHMA
     Route: 048
  12. THEOPHYLLINE [Suspect]
     Route: 048
  13. XYZAL [Concomitant]
     Indication: SEASONAL ALLERGY
     Route: 048
  14. RELPAX [Concomitant]
     Indication: MIGRAINE
     Dosage: AS REQUIRED
     Route: 048
  15. RHINOCORT [Concomitant]
     Indication: SEASONAL ALLERGY
     Dosage: 2 SPRAY DAILY (1 IN 1 D)
     Route: 045
  16. NEXIUM [Concomitant]
     Indication: GASTROOESOPHAGEAL REFLUX DISEASE
     Route: 048
  17. TOPAMAX [Concomitant]
     Indication: MIGRAINE
     Route: 048
  18. TOPAMAX [Concomitant]
     Route: 048
  19. VITAMIN B-12 [Concomitant]
     Dosage: 1 IN 1 M
     Route: 058
  20. PERCOCET [Concomitant]
     Indication: FIBROMYALGIA
     Dosage: 10/325 MG AS REQUIRED
     Route: 048
  21. MULTI-VITAMINS [Concomitant]
  22. CALCIUM/VITAMIN D [Concomitant]
     Route: 048

REACTIONS (4)
  - BLOOD PRESSURE INCREASED [None]
  - CATARACT [None]
  - OVERDOSE [None]
  - SINUSITIS [None]
